FAERS Safety Report 17764698 (Version 2)
Quarter: 2020Q3

REPORT INFORMATION
  Report Type: Other
  Country: JP (occurrence: JP)
  Receive Date: 20200511
  Receipt Date: 20200723
  Transmission Date: 20201102
  Serious: Yes (Other)
  Sender: FDA-Public Use
  Company Number: JP-ROCHE-1945477

PATIENT
  Age: 55 Year
  Sex: Female
  Weight: 50 kg

DRUGS (36)
  1. MYCOPHENOLATE MOFETIL. [Suspect]
     Active Substance: MYCOPHENOLATE MOFETIL
     Route: 048
     Dates: start: 20161025, end: 20161031
  2. BRUFEN [Concomitant]
     Active Substance: IBUPROFEN
     Route: 048
     Dates: start: 20160920, end: 20160920
  3. SOLU?MEDROL [Concomitant]
     Active Substance: METHYLPREDNISOLONE SODIUM SUCCINATE
     Route: 042
     Dates: start: 20161021, end: 20161022
  4. AMLODIPINE [Concomitant]
     Active Substance: AMLODIPINE BESYLATE
     Route: 048
     Dates: start: 20161028, end: 20161111
  5. NEUTROGIN [Concomitant]
     Active Substance: LENOGRASTIM
     Route: 058
     Dates: start: 20170110, end: 20170110
  6. RITUXIMAB. [Suspect]
     Active Substance: RITUXIMAB
     Indication: PROPHYLAXIS AGAINST TRANSPLANT REJECTION
     Dosage: 10 MG/ML
     Route: 042
     Dates: start: 20160920, end: 20160920
  7. CERTICAN [Suspect]
     Active Substance: EVEROLIMUS
     Dosage: MOST RECENT RECEIVED ON 31/OCT/2016
     Route: 048
     Dates: start: 20161025
  8. SOLU?MEDROL [Concomitant]
     Active Substance: METHYLPREDNISOLONE SODIUM SUCCINATE
     Route: 042
     Dates: start: 20161016
  9. MICARDIS [Concomitant]
     Active Substance: TELMISARTAN
     Indication: HYPERTENSION
     Route: 048
     Dates: start: 20161024, end: 20161213
  10. LOPEMIN [Concomitant]
     Route: 048
     Dates: start: 20161028, end: 20161028
  11. MYCOPHENOLATE MOFETIL. [Suspect]
     Active Substance: MYCOPHENOLATE MOFETIL
     Indication: PROPHYLAXIS AGAINST TRANSPLANT REJECTION
     Route: 048
     Dates: start: 20160920, end: 20161005
  12. TACROLIMUS MONOHYDRATE [Suspect]
     Active Substance: TACROLIMUS
     Indication: PROPHYLAXIS AGAINST TRANSPLANT REJECTION
     Route: 048
     Dates: start: 20160920, end: 20161021
  13. ASTOMIN (JAPAN) [Concomitant]
     Route: 048
     Dates: start: 20160322, end: 20160405
  14. MYCOPHENOLATE MOFETIL. [Suspect]
     Active Substance: MYCOPHENOLATE MOFETIL
     Route: 048
     Dates: start: 20161006, end: 20161024
  15. MYCOPHENOLATE MOFETIL. [Suspect]
     Active Substance: MYCOPHENOLATE MOFETIL
     Route: 048
     Dates: start: 20161130, end: 20170124
  16. FERROMIA [Concomitant]
     Active Substance: SODIUM FERROUS CITRATE
     Route: 048
  17. BASILIXIMAB [Suspect]
     Active Substance: BASILIXIMAB
     Indication: PROPHYLAXIS AGAINST TRANSPLANT REJECTION
     Route: 042
     Dates: start: 20161020, end: 20161020
  18. RHYTHMY [Concomitant]
     Active Substance: RILMAZAFONE HYDROCHLORIDE
     Route: 048
     Dates: start: 20161017, end: 20161031
  19. NEUTROGIN [Concomitant]
     Active Substance: LENOGRASTIM
     Route: 058
     Dates: start: 20161213, end: 20161213
  20. MYCOPHENOLATE MOFETIL. [Suspect]
     Active Substance: MYCOPHENOLATE MOFETIL
     Route: 048
     Dates: start: 20161101, end: 20161129
  21. PREDONINE [Suspect]
     Active Substance: PREDNISOLONE
     Indication: PRODUCT USED FOR UNKNOWN INDICATION
     Route: 042
     Dates: start: 20161020
  22. BASILIXIMAB [Suspect]
     Active Substance: BASILIXIMAB
     Route: 042
     Dates: start: 20161024, end: 20161024
  23. SOLU?MEDROL [Concomitant]
     Active Substance: METHYLPREDNISOLONE SODIUM SUCCINATE
     Route: 042
     Dates: start: 20160920
  24. AMLODIPINE [Concomitant]
     Active Substance: AMLODIPINE BESYLATE
     Indication: HYPERTENSION
     Route: 048
     Dates: end: 20161019
  25. MIYA?BM [Concomitant]
     Active Substance: CLOSTRIDIUM BUTYRICUM SPORES STRAIN M-55
     Route: 048
     Dates: start: 20160920
  26. HANGESHASHINTO [Concomitant]
     Active Substance: HERBALS
     Route: 048
     Dates: start: 20160920, end: 20161030
  27. TALION [Concomitant]
     Route: 048
     Dates: start: 20160321, end: 20160328
  28. CERTICAN [Suspect]
     Active Substance: EVEROLIMUS
     Indication: PROPHYLAXIS AGAINST TRANSPLANT REJECTION
     Dosage: MOST RECENT DOSE ADMINISTERED ON 24/OCT/2016
     Route: 048
     Dates: start: 20160920
  29. CERTICAN [Suspect]
     Active Substance: EVEROLIMUS
     Dosage: MINIMUM DAILY DOSE: 1.5 MG/DAY, MAXIMUM DAILY DOSE: 3MG/DAY
     Route: 048
     Dates: start: 20161101
  30. SOLU?MEDROL [Concomitant]
     Active Substance: METHYLPREDNISOLONE SODIUM SUCCINATE
     Route: 042
     Dates: start: 20161020
  31. DAIPHEN [Concomitant]
     Active Substance: SULFAMETHOXAZOLE\TRIMETHOPRIM
     Indication: INFECTION PROPHYLAXIS
     Route: 048
     Dates: start: 20161030, end: 20170126
  32. CALBLOCK [Concomitant]
     Active Substance: AZELNIDIPINE
     Indication: HYPERTENSION
     Route: 048
     Dates: end: 20161019
  33. MYCOPHENOLATE MOFETIL. [Suspect]
     Active Substance: MYCOPHENOLATE MOFETIL
     Dosage: MINIMUM DOSAGE: 750 MG/DAY, MAXIMUM DOSAGE: 1500 MG/DAY
     Route: 048
     Dates: start: 20170125
  34. CELESTAMINE [Concomitant]
     Active Substance: BETAMETHASONE\DEXCHLORPHENIRAMINE MALEATE
     Route: 048
     Dates: start: 20160920, end: 20160920
  35. ASTOMIN (JAPAN) [Concomitant]
     Route: 048
     Dates: start: 20170322, end: 20170405
  36. NESP [Concomitant]
     Active Substance: DARBEPOETIN ALFA

REACTIONS (6)
  - Granulocytopenia [Recovered/Resolved]
  - Erythema of eyelid [Recovered/Resolved]
  - Anaemia [Recovered/Resolved]
  - Faeces soft [Recovering/Resolving]
  - Swelling of eyelid [Recovered/Resolved]
  - Oropharyngeal pain [Recovered/Resolved]

NARRATIVE: CASE EVENT DATE: 20160920
